FAERS Safety Report 16384686 (Version 8)
Quarter: 2019Q3

REPORT INFORMATION
  Report Type: Report from Study
  Country: US (occurrence: US)
  Receive Date: 20190603
  Receipt Date: 20190814
  Transmission Date: 20191004
  Serious: Yes (Hospitalization, Other)
  Sender: FDA-Public Use
  Company Number: US-JNJFOC-20190542072

PATIENT
  Age: 59 Year
  Sex: Male

DRUGS (15)
  1. IMBRUVICA [Suspect]
     Active Substance: IBRUTINIB
     Indication: NON-HODGKIN^S LYMPHOMA
     Route: 065
     Dates: start: 201902
  2. IMBRUVICA [Suspect]
     Active Substance: IBRUTINIB
     Route: 048
     Dates: start: 20190427
  3. ARTIFICIAL TEARS                   /00445101/ [Concomitant]
     Dosage: 1 DF, BID (1 DROP TO EACH AFFECTED EYE)
  4. FISH OIL [Concomitant]
     Active Substance: FISH OIL
     Dosage: 1000 MG, TID
  5. IMBRUVICA [Suspect]
     Active Substance: IBRUTINIB
     Route: 048
     Dates: start: 20190723
  6. MELATONIN [Concomitant]
     Active Substance: MELATONIN
     Dosage: 5 MG, QD (AT BED TIME)
     Route: 048
  7. FLUOCINOLONE ACETONIDE. [Concomitant]
     Active Substance: FLUOCINOLONE ACETONIDE
     Dosage: 0.01 %, BID
     Route: 061
  8. CLOBETASOL [Concomitant]
     Active Substance: CLOBETASOL
     Dosage: 0.05 %, UNK (2 TIMES A DAY, 3 DAYS A WEEK, AS NEEDED)
     Route: 061
  9. BACTRIM [Concomitant]
     Active Substance: SULFAMETHOXAZOLE\TRIMETHOPRIM
     Indication: PNEUMOCYSTIS JIROVECII PNEUMONIA
     Route: 048
  10. IMBRUVICA [Suspect]
     Active Substance: IBRUTINIB
     Route: 048
     Dates: start: 20190201
  11. CHOLECALCIFEROL [Concomitant]
     Active Substance: CHOLECALCIFEROL
     Route: 048
  12. NYSTATIN. [Concomitant]
     Active Substance: NYSTATIN
     Dosage: 100000 U/G, UNK
     Route: 061
  13. MULTIVITAMIN                       /00097801/ [Concomitant]
     Active Substance: VITAMINS
  14. CORTAID                            /00028601/ [Concomitant]
     Dosage: 1 %, BID
     Route: 061
  15. VITAMIN C [Concomitant]
     Active Substance: ASCORBIC ACID
     Dosage: 250 MG, QD
     Route: 048

REACTIONS (19)
  - Pleural adhesion [Unknown]
  - White blood cell count increased [Unknown]
  - Rash [Not Recovered/Not Resolved]
  - Hypoxia [Unknown]
  - Hypersomnia [Unknown]
  - Pleural effusion [Unknown]
  - Pulmonary fibrosis [Unknown]
  - Squamous cell carcinoma of skin [Unknown]
  - Hypoaesthesia [Unknown]
  - Loss of personal independence in daily activities [Unknown]
  - Hypoacusis [Unknown]
  - Peripheral swelling [Unknown]
  - Abdominal pain upper [Unknown]
  - Pneumonia [Unknown]
  - Pyrexia [Unknown]
  - Limb discomfort [Unknown]
  - Peroneal nerve palsy [Unknown]
  - Asthenia [Unknown]
  - Joint hyperextension [Unknown]

NARRATIVE: CASE EVENT DATE: 20190516
